FAERS Safety Report 9401057 (Version 1)
Quarter: 2013Q3

REPORT INFORMATION
  Report Type: Spontaneous
  Country: JP (occurrence: JP)
  Receive Date: 20130715
  Receipt Date: 20130715
  Transmission Date: 20140515
  Serious: Yes (Hospitalization)
  Sender: FDA-Public Use
  Company Number: JP-SUCAMPO PHARMA AMERICAS, INC-SPI201300341

PATIENT
  Age: 85 Year
  Sex: Female
  Weight: 40 kg

DRUGS (5)
  1. AMITIZA [Suspect]
     Indication: CONSTIPATION
     Dosage: 24 MCG, QD
     Route: 048
     Dates: start: 20130403, end: 20130404
  2. OZEX [Suspect]
     Indication: C-REACTIVE PROTEIN INCREASED
     Dosage: 150 MG, BID
     Route: 048
     Dates: start: 20130403, end: 20130405
  3. PACETCOOL [Concomitant]
     Indication: C-REACTIVE PROTEIN INCREASED
     Dosage: 1 G, QD
     Route: 042
     Dates: start: 20130403, end: 20130403
  4. MAXIPIME [Concomitant]
     Indication: C-REACTIVE PROTEIN INCREASED
     Dosage: 1 G, BID
     Route: 042
     Dates: start: 20130404, end: 20130404
  5. MAXIPIME [Concomitant]
     Dosage: 1 UNK, BID
     Route: 042
     Dates: start: 20130405, end: 20130405

REACTIONS (3)
  - Blood pressure decreased [Recovered/Resolved]
  - Nausea [None]
  - C-reactive protein increased [Unknown]
